FAERS Safety Report 10059465 (Version 1)
Quarter: 2014Q2

REPORT INFORMATION
  Report Type: Spontaneous
  Country: US (occurrence: US)
  Receive Date: 20140404
  Receipt Date: 20140404
  Transmission Date: 20141212
  Serious: Yes (Death, Other)
  Sender: FDA-Public Use
  Company Number: US-PFIZER INC-2014093567

PATIENT
  Age: 67 Year
  Sex: Male

DRUGS (1)
  1. AROMASIN [Suspect]
     Dosage: UNK

REACTIONS (2)
  - Death [Fatal]
  - Intentional product misuse [Unknown]
